FAERS Safety Report 10011540 (Version 2)
Quarter: 2014Q1

REPORT INFORMATION
  Report Type: Spontaneous
  Country: JP (occurrence: JP)
  Receive Date: 20140314
  Receipt Date: 20140314
  Transmission Date: 20141002
  Serious: Yes (Hospitalization, Disabling)
  Sender: FDA-Public Use
  Company Number: JP-PFIZER INC-2014051151

PATIENT
  Age: 82 Year
  Sex: Male

DRUGS (2)
  1. ALDACTONE A [Suspect]
     Indication: OEDEMA DUE TO CARDIAC DISEASE
     Dosage: 50 MG, DAILY
     Route: 048
     Dates: start: 2009
  2. SYMMETREL [Suspect]
     Dosage: 100 MG, DAILY
     Route: 048

REACTIONS (1)
  - Urinary retention [Not Recovered/Not Resolved]
